FAERS Safety Report 8897066 (Version 1)
Quarter: 2012Q4

REPORT INFORMATION
  Report Type: 
  Country: US (occurrence: US)
  Receive Date: 20121108
  Receipt Date: 20121108
  Transmission Date: 20130627
  Serious: No
  Sender: FDA-Public Use
  Company Number: US-AMGEN-USASP2012025483

PATIENT
  Age: 64 Year
  Sex: Female

DRUGS (6)
  1. ENBREL [Suspect]
     Indication: RHEUMATOID ARTHRITIS
     Dosage: 50 mg, qwk
     Route: 058
  2. LITHIUM CARBON [Concomitant]
     Dosage: 150 mg, UNK
  3. ATENOLOL [Concomitant]
     Dosage: 25 mg, UNK
  4. PREDNISONE [Concomitant]
     Dosage: 10 mg, UNK
  5. VITAMIN D /00107901/ [Concomitant]
  6. VITAMIN C                          /00008001/ [Concomitant]
     Dosage: 500 mg, UNK

REACTIONS (2)
  - Increased tendency to bruise [Unknown]
  - Injection site bruising [Unknown]
